FAERS Safety Report 11672898 (Version 1)
Quarter: 2015Q4

REPORT INFORMATION
  Report Type: Spontaneous
  Country: US (occurrence: US)
  Receive Date: 20151027
  Receipt Date: 20151027
  Transmission Date: 20160304
  Serious: No
  Sender: FDA-Public Use
  Company Number: US-ELI_LILLY_AND_COMPANY-US201007002288

PATIENT
  Sex: Female

DRUGS (1)
  1. FORTEO [Suspect]
     Active Substance: TERIPARATIDE
     Indication: OSTEOPOROSIS
     Dosage: 20 UG, DAILY (1/D)
     Route: 065

REACTIONS (9)
  - Influenza [Unknown]
  - Nasopharyngitis [Unknown]
  - Pain in extremity [Unknown]
  - Limb discomfort [Unknown]
  - Injection site erythema [Unknown]
  - Medial tibial stress syndrome [Unknown]
  - Diarrhoea [Unknown]
  - Arthralgia [Unknown]
  - Muscle spasms [Unknown]
